FAERS Safety Report 5528446-9 (Version None)
Quarter: 2007Q4

REPORT INFORMATION
  Report Type: 
  Country: None (occurrence: None)
  Receive Date: 20071128
  Receipt Date: 20071123
  Transmission Date: 20080405
  Serious: Yes (Death, Other)
  Sender: FDA-Public Use
  Company Number: ZM-BOEHRINGER INGELHEIM PHARMACEUTICALS, INC.-2007-DE-06467GD

PATIENT

DRUGS (6)
  1. NEVIRAPINE [Suspect]
     Indication: HUMAN IMMUNODEFICIENCY VIRUS TRANSMISSION
     Dosage: 2 MG/KG
     Route: 048
  2. NEVIRAPINE [Suspect]
     Indication: PROPHYLAXIS
     Route: 064
  3. ZIDOVUDINE [Suspect]
     Indication: HUMAN IMMUNODEFICIENCY VIRUS TRANSMISSION
     Dosage: 8 MG/KG
     Route: 048
  4. ZIDOVUDINE [Suspect]
     Indication: PROPHYLAXIS
  5. TRUVADA [Suspect]
     Indication: HUMAN IMMUNODEFICIENCY VIRUS TRANSMISSION
     Route: 064
  6. TRUVADA [Suspect]
     Indication: PROPHYLAXIS

REACTIONS (4)
  - DEATH [None]
  - HUMAN IMMUNODEFICIENCY VIRUS TRANSMISSION [None]
  - PNEUMONIA [None]
  - SEPSIS [None]
